FAERS Safety Report 13856528 (Version 1)
Quarter: 2017Q3

REPORT INFORMATION
  Report Type: Spontaneous
  Country: US (occurrence: US)
  Receive Date: 20170810
  Receipt Date: 20170810
  Transmission Date: 20171127
  Serious: Yes (Hospitalization, Other)
  Sender: FDA-Public Use
  Company Number: US-ROCHE-1321830

PATIENT
  Sex: Female

DRUGS (1)
  1. TAMIFLU [Suspect]
     Active Substance: OSELTAMIVIR PHOSPHATE
     Indication: INFLUENZA LIKE ILLNESS
     Route: 048
     Dates: start: 20131106, end: 20131107

REACTIONS (4)
  - Pyrexia [Not Recovered/Not Resolved]
  - Drug hypersensitivity [Unknown]
  - Stevens-Johnson syndrome [Unknown]
  - Malaise [Not Recovered/Not Resolved]
